FAERS Safety Report 13758318 (Version 2)
Quarter: 2017Q3

REPORT INFORMATION
  Report Type: Spontaneous
  Country: US (occurrence: US)
  Receive Date: 20170717
  Receipt Date: 20170830
  Transmission Date: 20171127
  Serious: No
  Sender: FDA-Public Use
  Company Number: US-PFIZER INC-2017305203

PATIENT
  Age: 61 Year
  Sex: Female

DRUGS (1)
  1. DICLOFENAC SODIUM. [Suspect]
     Active Substance: DICLOFENAC SODIUM
     Dosage: UNK
     Dates: end: 201606

REACTIONS (1)
  - Drug hypersensitivity [Unknown]
